FAERS Safety Report 5502074-3 (Version None)
Quarter: 2007Q4

REPORT INFORMATION
  Report Type: 
  Country: None (occurrence: None)
  Receive Date: 20071030
  Receipt Date: 20071022
  Transmission Date: 20080405
  Serious: Yes (Other)
  Sender: FDA-Public Use
  Company Number: US-ELI_LILLY_AND_COMPANY-US200710005263

PATIENT
  Sex: Female

DRUGS (4)
  1. CYMBALTA [Suspect]
     Indication: FIBROMYALGIA
     Dosage: 40 MG, UNK
     Route: 048
     Dates: start: 20060501
  2. CYMBALTA [Suspect]
     Dosage: 60 MG, DAILY (1/D)
     Route: 048
  3. SYNTHROID [Concomitant]
     Indication: THYROIDECTOMY
     Dates: start: 20070101
  4. NEXIUM [Concomitant]
     Indication: REFLUX OESOPHAGITIS

REACTIONS (10)
  - ACQUIRED OESOPHAGEAL WEB [None]
  - DIZZINESS [None]
  - DYSPHAGIA [None]
  - FATIGUE [None]
  - GASTRITIS [None]
  - INSOMNIA [None]
  - OESOPHAGEAL DISORDER [None]
  - OESOPHAGEAL STENOSIS [None]
  - SLEEP APNOEA SYNDROME [None]
  - THYROID CANCER [None]
